FAERS Safety Report 5504692-5 (Version None)
Quarter: 2007Q4

REPORT INFORMATION
  Report Type: 
  Country: None (occurrence: None)
  Receive Date: 20071030
  Receipt Date: 20070905
  Transmission Date: 20080405
  Serious: No
  Sender: FDA-Public Use
  Company Number: 267249

PATIENT
  Sex: Female

DRUGS (5)
  1. LEVEMIR [Suspect]
     Indication: INSULIN-REQUIRING TYPE II DIABETES MELLITUS
     Dosage: 30 IU, BID, SUBCUTANEOUS
     Route: 058
     Dates: start: 20070301
  2. APIDRA [Suspect]
     Indication: INSULIN-REQUIRING TYPE II DIABETES MELLITUS
     Dosage: 10 IU, BID, SUBCUTANEOUS
     Route: 058
     Dates: start: 20070301
  3. CRESTOR [Concomitant]
  4. ZIAC [Concomitant]
  5. IRON (IRON) [Concomitant]

REACTIONS (4)
  - INJECTION SITE URTICARIA [None]
  - MUSCLE TWITCHING [None]
  - MUSCULAR WEAKNESS [None]
  - RASH GENERALISED [None]
